FAERS Safety Report 6181998-0 (Version None)
Quarter: 2009Q2

REPORT INFORMATION
  Report Type: 
  Country: None (occurrence: None)
  Receive Date: 20090505
  Receipt Date: 20090424
  Transmission Date: 20091009
  Serious: Yes (Death, Hospitalization)
  Sender: FDA-Public Use
  Company Number: 2009AL002502

PATIENT
  Sex: Male

DRUGS (1)
  1. DIGOXIN [Suspect]
     Dates: end: 20080412

REACTIONS (8)
  - ANXIETY [None]
  - CARDIO-RESPIRATORY ARREST [None]
  - ECONOMIC PROBLEM [None]
  - EMOTIONAL DISORDER [None]
  - ILL-DEFINED DISORDER [None]
  - MULTIPLE INJURIES [None]
  - NERVOUSNESS [None]
  - PAIN [None]
